FAERS Safety Report 13721041 (Version 2)
Quarter: 2018Q1

REPORT INFORMATION
  Report Type: Report from Study
  Country: US (occurrence: US)
  Receive Date: 20170706
  Receipt Date: 20180126
  Transmission Date: 20180508
  Serious: No
  Sender: FDA-Public Use
  Company Number: PHEH2017US020665

PATIENT
  Sex: Male
  Weight: 65.77 kg

DRUGS (2)
  1. GILENYA [Suspect]
     Active Substance: FINGOLIMOD HYDROCHLORIDE
     Indication: MULTIPLE SCLEROSIS
     Dosage: 0.5 MG, QD
     Route: 048
  2. VITAMINS NOS [Concomitant]
     Active Substance: VITAMINS
     Indication: PRODUCT USED FOR UNKNOWN INDICATION
     Dosage: UNK
     Route: 065

REACTIONS (7)
  - Headache [Unknown]
  - Influenza like illness [Unknown]
  - Pain in extremity [Unknown]
  - Back pain [Unknown]
  - Abdominal pain [Unknown]
  - Diarrhoea [Unknown]
  - Sinusitis [Unknown]
